FAERS Safety Report 19894160 (Version 1)
Quarter: 2021Q3

REPORT INFORMATION
  Report Type: Spontaneous
  Country: US (occurrence: US)
  Receive Date: 20210928
  Receipt Date: 20210928
  Transmission Date: 20211014
  Serious: No
  Sender: FDA-Public Use
  Company Number: None

PATIENT
  Age: 20 Year
  Sex: Female

DRUGS (1)
  1. BICILLIN L?A [Suspect]
     Active Substance: PENICILLIN G BENZATHINE
     Indication: SYPHILIS
     Dosage: ?          OTHER FREQUENCY:1X/WEEK X 3 WEEKS;?
     Route: 030
     Dates: start: 20210824, end: 20210907

REACTIONS (4)
  - Device use confusion [None]
  - Product dispensing error [None]
  - Device delivery system issue [None]
  - Wrong technique in device usage process [None]

NARRATIVE: CASE EVENT DATE: 20210907
